FAERS Safety Report 6095860-5 (Version None)
Quarter: 2009Q1

REPORT INFORMATION
  Report Type: 
  Country: None (occurrence: None)
  Receive Date: 20090227
  Receipt Date: 20080630
  Transmission Date: 20090719
  Serious: No
  Sender: FDA-Public Use
  Company Number: A0735380A

PATIENT
  Age: 40 Year
  Sex: Female

DRUGS (7)
  1. LAMICTAL [Suspect]
     Indication: BIPOLAR DISORDER
     Dosage: 100MG PER DAY
     Route: 048
     Dates: start: 20080516
  2. DEPAKOTE [Suspect]
     Indication: BIPOLAR DISORDER
     Dosage: 1250MG TWICE PER DAY
     Route: 048
     Dates: start: 20071201, end: 20080530
  3. WELLBUTRIN [Concomitant]
  4. PROZAC [Concomitant]
  5. TOPAMAX [Concomitant]
  6. SYNTHROID [Concomitant]
  7. VALTREX [Concomitant]

REACTIONS (3)
  - ALOPECIA [None]
  - HEADACHE [None]
  - TREMOR [None]
